FAERS Safety Report 9096422 (Version 1)
Quarter: 2013Q1

REPORT INFORMATION
  Report Type: Spontaneous
  Country: US (occurrence: US)
  Receive Date: 20130208
  Receipt Date: 20130208
  Transmission Date: 20140127
  Serious: Yes (Other)
  Sender: FDA-Public Use
  Company Number: US-RB-049158-13

PATIENT
  Age: 67 Year
  Sex: Male

DRUGS (2)
  1. MUCINEX D (GUAIFENESIN) [Suspect]
     Indication: PRODUCT USED FOR UNKNOWN INDICATION
     Dosage: TOOK ONE TABLET AT 4PM AND 10PM ON 21-JAN-2013. LAST TOOK THE PRODUCT ON 22-JAN-2013 AT 10AM.
     Route: 048
     Dates: start: 20130121
  2. MUCINEX D [Suspect]

REACTIONS (2)
  - Epistaxis [Recovered/Resolved]
  - Inappropriate schedule of drug administration [Recovered/Resolved]
